APPROVED DRUG PRODUCT: VENLAFAXINE HYDROCHLORIDE
Active Ingredient: VENLAFAXINE HYDROCHLORIDE
Strength: EQ 75MG BASE
Dosage Form/Route: TABLET, EXTENDED RELEASE;ORAL
Application: A211323 | Product #001 | TE Code: AB
Applicant: CADILA PHARMACEUTICALS LTD
Approved: Aug 29, 2019 | RLD: No | RS: No | Type: RX